FAERS Safety Report 6518479-8 (Version None)
Quarter: 2009Q4

REPORT INFORMATION
  Report Type: 
  Country: None (occurrence: None)
  Receive Date: 20091226
  Receipt Date: 20091215
  Transmission Date: 20100525
  Serious: Yes (Other)
  Sender: FDA-Public Use
  Company Number: DE-JNJFOC-20091204492

PATIENT
  Sex: Female

DRUGS (3)
  1. DIPIPERON [Suspect]
     Indication: DRUG USE FOR UNKNOWN INDICATION
     Route: 048
     Dates: start: 20091215, end: 20091215
  2. FLUPENTIXOL [Suspect]
     Indication: DRUG USE FOR UNKNOWN INDICATION
     Route: 048
     Dates: start: 20091215, end: 20091215
  3. RISPERIDONE [Suspect]
     Indication: DRUG USE FOR UNKNOWN INDICATION
     Route: 048
     Dates: start: 20091215, end: 20091215

REACTIONS (3)
  - DYSKINESIA [None]
  - FOAMING AT MOUTH [None]
  - SUICIDE ATTEMPT [None]
